FAERS Safety Report 16050865 (Version 3)
Quarter: 2019Q4

REPORT INFORMATION
  Report Type: Spontaneous
  Country: US (occurrence: US)
  Receive Date: 20190308
  Receipt Date: 20191030
  Transmission Date: 20200122
  Serious: No
  Sender: FDA-Public Use
  Company Number: US-PFIZER INC-2019099481

PATIENT
  Age: 5 Year
  Sex: Male

DRUGS (1)
  1. EUCRISA [Suspect]
     Active Substance: CRISABOROLE
     Indication: DERMATITIS ATOPIC
     Dosage: UNK UNK, 2X/DAY (APPLY TO AFFECTED AREAS TWICE A DAY)
     Dates: start: 201901

REACTIONS (1)
  - Application site pain [Not Recovered/Not Resolved]
